FAERS Safety Report 19680265 (Version 8)
Quarter: 2025Q3

REPORT INFORMATION
  Report Type: Spontaneous
  Country: US (occurrence: US)
  Receive Date: 20210810
  Receipt Date: 20250707
  Transmission Date: 20251021
  Serious: Yes (Hospitalization, Other)
  Sender: PFIZER
  Company Number: US-PFIZER INC-202100933297

PATIENT
  Age: 64 Year
  Sex: Male
  Weight: 133.81 kg

DRUGS (2)
  1. SOMAVERT [Suspect]
     Active Substance: PEGVISOMANT
     Indication: Acromegaly
  2. SOMAVERT [Suspect]
     Active Substance: PEGVISOMANT
     Dosage: 30 MG, DAILY
     Route: 058

REACTIONS (6)
  - Heat stroke [Recovered/Resolved]
  - Blood sodium decreased [Recovered/Resolved]
  - Exposure to extreme temperature [Recovered/Resolved]
  - Arrhythmia [Recovered/Resolved]
  - Pituitary tumour [Unknown]
  - Product dose omission issue [Unknown]
